FAERS Safety Report 7145933-0 (Version None)
Quarter: 2010Q4

REPORT INFORMATION
  Report Type: 
  Country: None (occurrence: None)
  Receive Date: 20101208
  Receipt Date: 20101130
  Transmission Date: 20110411
  Serious: Yes (Hospitalization)
  Sender: FDA-Public Use
  Company Number: US-JNJFOC-20101006140

PATIENT
  Sex: Male
  Weight: 90.72 kg

DRUGS (3)
  1. INVEGA [Suspect]
     Indication: SCHIZOPHRENIA
     Route: 048
  2. ZOLOFT [Concomitant]
     Indication: ILL-DEFINED DISORDER
  3. CLOMIPHENE CITRATE [Concomitant]
     Indication: ILL-DEFINED DISORDER

REACTIONS (3)
  - BLOOD CREATINE PHOSPHOKINASE INCREASED [None]
  - COGNITIVE DISORDER [None]
  - HYPOKINESIA [None]
